FAERS Safety Report 8858528 (Version 1)
Quarter: 2012Q4

REPORT INFORMATION
  Report Type: 
  Country: US (occurrence: US)
  Receive Date: 20121024
  Receipt Date: 20121024
  Transmission Date: 20130627
  Serious: Yes (Other)
  Sender: FDA-Public Use
  Company Number: US-ROCHE-1136122

PATIENT
  Sex: Female

DRUGS (3)
  1. RAPTIVA [Suspect]
     Indication: PSORIASIS
     Route: 050
  2. RAPTIVA [Suspect]
     Indication: PUSTULAR PSORIASIS
  3. RAPTIVA [Suspect]
     Indication: PUSTULAR PSORIASIS

REACTIONS (2)
  - Cerebrovascular accident [Unknown]
  - Memory impairment [Unknown]
